FAERS Safety Report 7071009-7 (Version None)
Quarter: 2010Q4

REPORT INFORMATION
  Report Type: 
  Country: None (occurrence: None)
  Receive Date: 20101029
  Receipt Date: 20101025
  Transmission Date: 20110411
  Serious: Yes (Life-Threatening, Hospitalization, Other)
  Sender: FDA-Public Use
  Company Number: DE-JNJFOC-20101004421

PATIENT
  Age: 49 Year
  Sex: Male
  Weight: 100 kg

DRUGS (4)
  1. RISPERDAL CONSTA [Suspect]
     Indication: SCHIZOAFFECTIVE DISORDER
     Route: 030
  2. INVEGA [Suspect]
     Indication: SCHIZOAFFECTIVE DISORDER
     Route: 048
  3. HALOPERIDOL [Suspect]
     Indication: SCHIZOAFFECTIVE DISORDER
     Route: 048
     Dates: start: 20100111, end: 20100915
  4. CIATYL [Suspect]
     Indication: SCHIZOAFFECTIVE DISORDER
     Route: 048
     Dates: start: 20100226, end: 20101008

REACTIONS (2)
  - MYOCARDIAL INFARCTION [None]
  - REFUSAL OF TREATMENT BY PATIENT [None]
